FAERS Safety Report 16787010 (Version 1)
Quarter: 2019Q3

REPORT INFORMATION
  Report Type: Spontaneous
  Country: US (occurrence: US)
  Receive Date: 20190909
  Receipt Date: 20190909
  Transmission Date: 20191005
  Serious: No
  Sender: FDA-Public Use
  Company Number: US-SA-2019SA244873

PATIENT
  Age: 19 Year
  Sex: Female

DRUGS (2)
  1. DUPIXENT [Suspect]
     Active Substance: DUPILUMAB
     Dosage: 300 MG, QOW
     Route: 058
  2. DUPIXENT [Suspect]
     Active Substance: DUPILUMAB
     Indication: DERMATITIS ATOPIC
     Dosage: 600 MG, 1X, 300MG/2ML
     Route: 058
     Dates: start: 20190817, end: 20190817

REACTIONS (4)
  - Visual impairment [Unknown]
  - Lacrimation increased [Unknown]
  - Pruritus generalised [Not Recovered/Not Resolved]
  - Astigmatism [Unknown]
